FAERS Safety Report 5800281-3 (Version None)
Quarter: 2008Q3

REPORT INFORMATION
  Report Type: 
  Country: None (occurrence: None)
  Receive Date: 20080703
  Receipt Date: 20080701
  Transmission Date: 20090109
  Serious: Yes (Death)
  Sender: FDA-Public Use
  Company Number: PHBS2008GR01902

PATIENT
  Age: 22 Year
  Sex: Male

DRUGS (1)
  1. ERGOTAMINE TARTRATE [Suspect]
     Route: 042

REACTIONS (2)
  - DRUG LEVEL INCREASED [None]
  - POISONING [None]
